FAERS Safety Report 7397692-4 (Version None)
Quarter: 2011Q2

REPORT INFORMATION
  Report Type: 
  Country: None (occurrence: None)
  Receive Date: 20110406
  Receipt Date: 20110325
  Transmission Date: 20111010
  Serious: Yes (Other)
  Sender: FDA-Public Use
  Company Number: US-PFIZER INC-2011054593

PATIENT
  Sex: Male
  Weight: 132 kg

DRUGS (2)
  1. ATENOLOL [Concomitant]
     Dosage: 12.5 MG, 1X/DAY
  2. TIKOSYN [Suspect]
     Indication: ATRIAL FIBRILLATION
     Dosage: 500 MG, 2X/DAY
     Route: 048
     Dates: start: 20060101

REACTIONS (2)
  - DYSPHAGIA [None]
  - OESOPHAGEAL CARCINOMA [None]
